FAERS Safety Report 10080893 (Version 1)
Quarter: 2014Q2

REPORT INFORMATION
  Report Type: Spontaneous
  Country: US (occurrence: None)
  Receive Date: 20140415
  Receipt Date: 20140415
  Transmission Date: 20141212
  Serious: Yes (Other)
  Sender: FDA-Public Use
  Company Number: None

PATIENT
  Age: 71 Year
  Sex: Male
  Weight: 104.33 kg

DRUGS (12)
  1. LENALIDOMIDE [Suspect]
     Indication: PLASMA CELL MYELOMA
     Dosage: 15 MG PO DAYS 1-21 OF 28
     Route: 048
     Dates: start: 20140309, end: 20140329
  2. METHADONE [Concomitant]
  3. PREGABALIN [Concomitant]
  4. NEXIUM [Concomitant]
  5. TADALAFIL (CIALIS) [Concomitant]
  6. BETAMETHASONE DIPROPIONATE [Concomitant]
  7. ONDANSETRON [Concomitant]
  8. PROCHLORPERAZINE [Concomitant]
  9. ASPIRIN [Concomitant]
  10. ACYCLOVIR [Concomitant]
  11. IBUPROFEN [Concomitant]
  12. ALLEGRA [Concomitant]

REACTIONS (13)
  - Oropharyngeal pain [None]
  - Dysphonia [None]
  - Productive cough [None]
  - Asthenia [None]
  - Fatigue [None]
  - Asthenia [None]
  - Muscular weakness [None]
  - Gait disturbance [None]
  - Blood creatinine increased [None]
  - Plasma cell myeloma [None]
  - Hyperammonaemia [None]
  - Toxicity to various agents [None]
  - Light chain analysis increased [None]
